FAERS Safety Report 9425979 (Version 2)
Quarter: 2013Q3

REPORT INFORMATION
  Report Type: Spontaneous
  Country: US (occurrence: US)
  Receive Date: 20130729
  Receipt Date: 20130814
  Transmission Date: 20140515
  Serious: Yes (Death)
  Sender: FDA-Public Use
  Company Number: US-ROCHE-1254586

PATIENT
  Age: 62 Year
  Sex: Female

DRUGS (1)
  1. XELODA [Suspect]
     Indication: BREAST CANCER STAGE IV
     Dosage: FOR 14 DAYS ON , 7 DAYS OFF.
     Route: 065
     Dates: start: 20120618, end: 20130612

REACTIONS (1)
  - Death [Fatal]
